FAERS Safety Report 14057440 (Version 3)
Quarter: 2018Q1

REPORT INFORMATION
  Report Type: Spontaneous
  Country: US (occurrence: US)
  Receive Date: 20171006
  Receipt Date: 20180301
  Transmission Date: 20180508
  Serious: Yes (Hospitalization, Other)
  Sender: FDA-Public Use
  Company Number: US-009507513-1710USA001670

PATIENT
  Sex: Female
  Weight: 83.9 kg

DRUGS (1)
  1. NUVARING [Suspect]
     Active Substance: ETHINYL ESTRADIOL\ETONOGESTREL
     Indication: CONTRACEPTION
     Dosage: 1 RING FOR 3 WEEKS, 1 WEEK OFF
     Route: 067
     Dates: start: 201505, end: 20151003

REACTIONS (11)
  - Menorrhagia [Unknown]
  - Back pain [Unknown]
  - Swelling [Unknown]
  - Paraesthesia [Unknown]
  - Abdominal pain [Unknown]
  - Haematemesis [Unknown]
  - Pulmonary embolism [Unknown]
  - Anxiety [Unknown]
  - Menstruation irregular [Unknown]
  - Obesity [Unknown]
  - Chest pain [Unknown]

NARRATIVE: CASE EVENT DATE: 201510
